FAERS Safety Report 5194322-7 (Version None)
Quarter: 2006Q4

REPORT INFORMATION
  Report Type: 
  Country: None (occurrence: None)
  Receive Date: 20061228
  Receipt Date: 20060713
  Transmission Date: 20070319
  Serious: Yes (Other)
  Sender: FDA-Public Use
  Company Number: US-SHR-US-2006-023105

PATIENT
  Age: 38 Year
  Sex: Female

DRUGS (3)
  1. MIRENA [Suspect]
     Indication: CONTRACEPTION
     Dosage: 20 A?G/DAY, CONT
     Route: 015
     Dates: start: 20050301, end: 20060101
  2. ALTACE [Concomitant]
     Dosage: UNK, UNK
     Route: 048
  3. AMBERCETIN [Concomitant]
     Dosage: UNK, UNK

REACTIONS (1)
  - MENORRHAGIA [None]
